FAERS Safety Report 4985091-1 (Version None)
Quarter: 2006Q1

REPORT INFORMATION
  Report Type: 
  Country: None (occurrence: None)
  Receive Date: 20060303
  Receipt Date: 19980723
  Transmission Date: 20060701
  Serious: Yes (Hospitalization, Disabling)
  Sender: FDA-Public Use
  Company Number: PHEH1998US17906

PATIENT
  Age: 49 Year
  Sex: Female

DRUGS (3)
  1. SANDIMMUNE [Suspect]
     Dosage: SEE IMAGE
     Dates: end: 19980426
  2. SANDIMMUNE [Suspect]
     Dosage: SEE IMAGE
     Dates: start: 19980411
  3. FLECAINIDE ACETATE [Concomitant]

REACTIONS (1)
  - GRAND MAL CONVULSION [None]
